FAERS Safety Report 9476738 (Version 1)
Quarter: 2013Q3

REPORT INFORMATION
  Report Type: Spontaneous
  Country: US (occurrence: US)
  Receive Date: 20130826
  Receipt Date: 20130826
  Transmission Date: 20140515
  Serious: No
  Sender: FDA-Public Use
  Company Number: US-BRISTOL-MYERS SQUIBB COMPANY-18696625

PATIENT
  Age: 51 Year
  Sex: Female
  Weight: 76.64 kg

DRUGS (8)
  1. KENALOG-40 INJ [Suspect]
     Indication: VERTEBRAL FORAMINAL STENOSIS
     Route: 008
     Dates: start: 20130314
  2. KENALOG-40 INJ [Suspect]
     Indication: RADICULAR PAIN
     Route: 008
     Dates: start: 20130314
  3. KENALOG-40 INJ [Suspect]
     Indication: INTERVERTEBRAL DISC DEGENERATION
     Route: 008
     Dates: start: 20130314
  4. KENALOG-40 INJ [Suspect]
     Indication: BACK PAIN
     Route: 008
     Dates: start: 20130314
  5. LISINOPRIL [Concomitant]
  6. HCTZ [Concomitant]
  7. NEXIUM [Concomitant]
  8. IBUPROFEN [Concomitant]

REACTIONS (2)
  - Swelling face [Unknown]
  - Erythema [Unknown]
